FAERS Safety Report 4616891-5 (Version None)
Quarter: 2005Q1

REPORT INFORMATION
  Report Type: 
  Country: None (occurrence: None)
  Receive Date: 20050318
  Receipt Date: 20050307
  Transmission Date: 20050727
  Serious: Yes (Hospitalization, Other)
  Sender: FDA-Public Use
  Company Number: HQWYE175313OCT03

PATIENT
  Age: 31 Year
  Sex: Male

DRUGS (11)
  1. RAPAMUNE [Suspect]
     Indication: PROPHYLAXIS AGAINST TRANSPLANT REJECTION
     Dosage: ALTERNATING 1 MG WITH 2MG ONCE DAILY
     Route: 048
     Dates: start: 20030709, end: 20031013
  2. RAPAMUNE [Suspect]
  3. RAPAMUNE [Suspect]
  4. PREDNISONE [Concomitant]
  5. MYCOPHENOLATE MOFETIL (MYCOPHENOLATE MOFETIL) [Concomitant]
  6. POLPRESSIN (PRAZOSIN HYDROCHLORIDE) [Concomitant]
  7. AMLODIPINE [Concomitant]
  8. METOPROLOL TARTRATE [Concomitant]
  9. FUROSEMIDE [Concomitant]
  10. SULFAMETHOXAZOLE + TRIMETHOPRIM [Concomitant]
  11. ATORVASTATIN (ATORVASTATIN) [Concomitant]

REACTIONS (6)
  - BLOOD CREATININE INCREASED [None]
  - COMPLICATIONS OF TRANSPLANTED KIDNEY [None]
  - DISEASE PROGRESSION [None]
  - GRAFT LOSS [None]
  - HAEMODIALYSIS [None]
  - NEPHROPATHY [None]
